FAERS Safety Report 15839141 (Version 2)
Quarter: 2020Q2

REPORT INFORMATION
  Report Type: Report from Study
  Country: DE (occurrence: DE)
  Receive Date: 20190117
  Receipt Date: 20200504
  Transmission Date: 20200713
  Serious: Yes (Death, Hospitalization)
  Sender: FDA-Public Use
  Company Number: DE-PURDUE PHARMA-GBR-2018-0053159

PATIENT
  Age: 44 Year
  Sex: Female
  Weight: 64 kg

DRUGS (53)
  1. HYDROMORPHONE HYDROCHLORIDE. [Suspect]
     Active Substance: HYDROMORPHONE HYDROCHLORIDE
     Indication: MALIGNANT MELANOMA
     Dosage: 12 MG, DAILY (4 MG, TID)
     Route: 048
     Dates: start: 20180516
  2. HYDROMORPHONE HYDROCHLORIDE. [Suspect]
     Active Substance: HYDROMORPHONE HYDROCHLORIDE
     Indication: PAIN
     Dosage: 24 MG, DAILY (8 MG, TID)
     Route: 048
     Dates: start: 20180226
  3. DEXAMETHASONE. [Concomitant]
     Active Substance: DEXAMETHASONE
     Dosage: 8 MG, DAILY (8 MG, QD)
     Route: 042
     Dates: start: 20180225, end: 20180225
  4. IBUPROFEN. [Concomitant]
     Active Substance: IBUPROFEN
     Indication: MALIGNANT MELANOMA
     Dosage: 600 MG, DAILY (DAILY DOSE: 600 MG MILLIGRAM(S) EVERY DAY)
     Route: 048
     Dates: start: 20170214, end: 20170406
  5. ZOFRAN [Concomitant]
     Active Substance: ONDANSETRON HYDROCHLORIDE
     Dosage: 4 MG, DAILY (4 MG, QD)
     Route: 048
     Dates: start: 20180303, end: 20180303
  6. HYDROMORPHONE HYDROCHLORIDE. [Suspect]
     Active Substance: HYDROMORPHONE HYDROCHLORIDE
     Dosage: 8 MG, DAILY (4 MG, BID)
     Route: 048
     Dates: start: 20170407, end: 20170706
  7. DEXAMETHASONE. [Concomitant]
     Active Substance: DEXAMETHASONE
     Indication: INTRACRANIAL PRESSURE INCREASED
     Dosage: 24 MG, DAILY (8 MG, TID)
     Route: 042
     Dates: start: 20180226, end: 20180301
  8. DEXAMETHASONE. [Concomitant]
     Active Substance: DEXAMETHASONE
     Dosage: 4 MG, DAILY (4 MG, QD)
     Route: 048
     Dates: start: 20171129
  9. CIPRALEX [Concomitant]
     Active Substance: ESCITALOPRAM OXALATE
     Dosage: 10 MG, DAILY (10 MG, QD)
     Route: 048
     Dates: start: 20170518, end: 20180228
  10. BIFITERAL [Concomitant]
     Active Substance: LACTULOSE
     Indication: PRODUCT USED FOR UNKNOWN INDICATION
     Dosage: 10 G, DAILY (10 G, QD)
     Route: 048
     Dates: start: 20180312
  11. ZOFRAN [Concomitant]
     Active Substance: ONDANSETRON HYDROCHLORIDE
     Dosage: 8 MG, PRN (8 MG, PRN)
     Route: 048
     Dates: start: 20170308, end: 20180225
  12. DEXAMETHASONE. [Concomitant]
     Active Substance: DEXAMETHASONE
     Indication: MALIGNANT MELANOMA
     Dosage: 8 MG, DAILY (4 MG, BID)
     Route: 048
     Dates: start: 20180304, end: 20180318
  13. PANTOPRAZOLE [Concomitant]
     Active Substance: PANTOPRAZOLE
     Indication: MALIGNANT MELANOMA
     Dosage: 40 MG, DAILY (40 MG, QD)
     Route: 048
     Dates: start: 20170829
  14. MCP [Concomitant]
     Active Substance: METOCLOPRAMIDE HYDROCHLORIDE
     Indication: MALIGNANT MELANOMA
     Dosage: 30 MG, DAILY (10 MG, TID)
     Route: 048
     Dates: start: 20180228, end: 20180303
  15. PREGABALIN. [Concomitant]
     Active Substance: PREGABALIN
     Indication: PRODUCT USED FOR UNKNOWN INDICATION
     Dosage: 100 MG, DAILY (100 MG, QD)
     Dates: start: 20180225
  16. HYDROMORPHONE HYDROCHLORIDE. [Suspect]
     Active Substance: HYDROMORPHONE HYDROCHLORIDE
     Dosage: 8 MG, DAILY (8 MG, QD)
     Route: 048
     Dates: start: 20180225, end: 20180225
  17. LAXOBERAL [Concomitant]
     Active Substance: SODIUM PICOSULFATE
     Indication: MALIGNANT MELANOMA
     Dosage: 20 DROP, PRN (20 DRP, PRN)
     Route: 048
     Dates: start: 20180516
  18. LAXOBERAL [Concomitant]
     Active Substance: SODIUM PICOSULFATE
     Dosage: 20 DROP, DAILY (20 GTT, QD)
     Route: 048
     Dates: start: 20170407, end: 20180225
  19. DEXAMETHASONE. [Concomitant]
     Active Substance: DEXAMETHASONE
     Dosage: 4 MG, DAILY (4 MG, QD)
     Route: 048
     Dates: start: 20170829, end: 20171128
  20. CIPRALEX [Concomitant]
     Active Substance: ESCITALOPRAM OXALATE
     Indication: DEPRESSION
     Dosage: 10 MG, DAILY (10 MG, QD)
     Route: 048
     Dates: start: 20180312
  21. ORTOTON                            /00047901/ [Concomitant]
     Active Substance: METHOCARBAMOL
     Indication: PRODUCT USED FOR UNKNOWN INDICATION
     Dosage: 750 MG, UNK (750 MG, THREE TIMES AS NEEDED)
     Route: 048
     Dates: start: 20180516
  22. ABSTRAL [Concomitant]
     Active Substance: FENTANYL CITRATE
     Indication: MALIGNANT MELANOMA
     Dosage: 800 MCG, DAILY (200 UG, QID)
     Route: 048
     Dates: start: 20180516
  23. ZOFRAN [Concomitant]
     Active Substance: ONDANSETRON HYDROCHLORIDE
     Dosage: 16 MG, DAILY (8 MG, BID)
     Route: 048
     Dates: start: 20161115, end: 20170307
  24. NIVOLUMAB [Concomitant]
     Active Substance: NIVOLUMAB
     Indication: MALIGNANT MELANOMA
     Dosage: 1 MG/KG, UNK (1 MG/KG, Q3W)
     Route: 042
     Dates: end: 20181024
  25. NOVAMINOSULFON [Concomitant]
     Active Substance: METAMIZOLE SODIUM
     Dosage: 1000 MG, DAILY (1000 MG, QD)
     Route: 048
     Dates: start: 20170917, end: 20170917
  26. NOVAMINOSULFON [Concomitant]
     Active Substance: METAMIZOLE SODIUM
     Dosage: 300 MG, DAILY (100 MG, TID)
     Route: 048
     Dates: start: 20170407, end: 20170916
  27. MCP [Concomitant]
     Active Substance: METOCLOPRAMIDE HYDROCHLORIDE
     Dosage: 15 MG, DAILY (5 MG, TID)
     Route: 048
     Dates: start: 20180227, end: 20180227
  28. PREGABA [Concomitant]
     Active Substance: PREGABALIN
     Indication: DEPRESSED MOOD
     Dosage: 75 MG, DAILY (75 MG, QD)
     Route: 048
     Dates: start: 20170829
  29. PREGABA [Concomitant]
     Active Substance: PREGABALIN
     Dosage: 150 MG, DAILY (75 MG, BID)
     Route: 048
     Dates: start: 20170906, end: 20180224
  30. CELEBREX [Concomitant]
     Active Substance: CELECOXIB
     Indication: PRODUCT USED FOR UNKNOWN INDICATION
     Dosage: 100 MG, DAILY (100 MG, QD)
     Route: 048
     Dates: start: 20180302
  31. ZOFRAN [Concomitant]
     Active Substance: ONDANSETRON HYDROCHLORIDE
     Dosage: 12 MG, DAILY (4 MG, TID)
     Route: 042
     Dates: start: 20180227, end: 20180302
  32. ZOFRAN [Concomitant]
     Active Substance: ONDANSETRON HYDROCHLORIDE
     Dosage: 8 MG, DAILY (4 MG, BID)
     Route: 042
     Dates: start: 20180226, end: 20180226
  33. HYDROMORPHONE HYDROCHLORIDE. [Suspect]
     Active Substance: HYDROMORPHONE HYDROCHLORIDE
     Dosage: 12 MG, DAILY (4 MG, TID)
     Route: 048
     Dates: start: 20170707, end: 20180224
  34. DEXAMETHASONE. [Concomitant]
     Active Substance: DEXAMETHASONE
     Dosage: 20 MG, DAILY (20 MG, QD)
     Route: 042
     Dates: start: 20180225, end: 20180225
  35. TILIDIN [Concomitant]
     Active Substance: NALOXONE HYDROCHLORIDE\TILIDINE HYDROCHLORIDE
     Indication: PRODUCT USED FOR UNKNOWN INDICATION
     Dosage: 50 MG, PRN (50 MG, QD (PRN))
     Route: 048
     Dates: start: 20161115, end: 20170406
  36. MCP [Concomitant]
     Active Substance: METOCLOPRAMIDE HYDROCHLORIDE
     Dosage: 10 MG, DAILY (5 MG, BID)
     Route: 048
     Dates: start: 20180226, end: 20180226
  37. MCP [Concomitant]
     Active Substance: METOCLOPRAMIDE HYDROCHLORIDE
     Dosage: 30 MG, DAILY (10 MG, TID)
     Route: 048
     Dates: start: 20170118
  38. PREGABA [Concomitant]
     Active Substance: PREGABALIN
     Dosage: 150 MG, DAILY (75 MG, BID)
     Route: 048
     Dates: start: 20180225
  39. PREGABA [Concomitant]
     Active Substance: PREGABALIN
     Dosage: 150 MG, DAILY (150 MG, QD)
     Route: 048
     Dates: start: 20171129
  40. LAXANS                             /00064401/ [Concomitant]
     Indication: PRODUCT USED FOR UNKNOWN INDICATION
     Dosage: 15 DROP, DAILY (15 DRP, QD)
     Route: 048
     Dates: start: 20180225, end: 20180303
  41. MIRTAZAPINE. [Concomitant]
     Active Substance: MIRTAZAPINE
     Indication: MALIGNANT MELANOMA
     Dosage: 15 MG, QD
     Route: 048
     Dates: start: 20170920, end: 20170922
  42. NOVAMINOSULFON [Concomitant]
     Active Substance: METAMIZOLE SODIUM
     Indication: MALIGNANT MELANOMA
     Dosage: 3 G, DAILY (1 G, TID)
     Route: 048
     Dates: start: 20180516
  43. NOVAMINOSULFON [Concomitant]
     Active Substance: METAMIZOLE SODIUM
     Dosage: 200 MG, DAILY (100 MG, BID)
     Route: 048
     Dates: start: 20170917, end: 20170917
  44. NOVAMINOSULFON [Concomitant]
     Active Substance: METAMIZOLE SODIUM
     Dosage: 3000 MG, DAILY (1000 MG, TID)
     Route: 048
     Dates: start: 20170829
  45. NOVAMINOSULFON [Concomitant]
     Active Substance: METAMIZOLE SODIUM
     Dosage: 500 MG, UNK (500 MG, PRN)
     Route: 048
     Dates: start: 20161115, end: 20170406
  46. PALLADON [Concomitant]
     Active Substance: HYDROMORPHONE
     Indication: MALIGNANT MELANOMA
     Dosage: 1.3 MG, PRN (UPTO QD AS NEEDED, 2 HOUR MINIMUM IN BETWEEN)
     Route: 048
     Dates: start: 20170407
  47. MOVICOL [Concomitant]
     Active Substance: POLYETHYLENE GLYCOL 3350\POTASSIUM CHLORIDE\SODIUM BICARBONATE\SODIUM CHLORIDE
     Indication: PRODUCT USED FOR UNKNOWN INDICATION
     Dosage: 13.81 G, DAILY (13.81 G, QD)
     Route: 048
     Dates: start: 20170829, end: 20171128
  48. BIFITERAL [Concomitant]
     Active Substance: LACTULOSE
     Dosage: 10 G, DAILY (10 G, QD)
     Route: 048
     Dates: start: 20180225, end: 20180225
  49. ZOFRAN [Concomitant]
     Active Substance: ONDANSETRON HYDROCHLORIDE
     Dosage: 4 MG, DAILY (4 MG, QD)
     Route: 048
     Dates: start: 20180302, end: 20180302
  50. PEMBROLIZUMAB. [Concomitant]
     Active Substance: PEMBROLIZUMAB
     Indication: MALIGNANT MELANOMA
     Dosage: 2 MG/KG, DAILY (2 MG/KG, QD)
     Route: 048
     Dates: start: 20180517, end: 20181002
  51. DEXAMETHASONE. [Concomitant]
     Active Substance: DEXAMETHASONE
     Indication: INTRACRANIAL PRESSURE INCREASED
     Dosage: 12 MG, DAILY (4 MG, TID)
     Route: 048
     Dates: start: 20180302, end: 20180303
  52. IPILIMUMAB [Concomitant]
     Active Substance: IPILIMUMAB
     Indication: MALIGNANT MELANOMA
     Dosage: 3 MG/KG, Q3W
     Route: 042
     Dates: start: 20181024, end: 20181024
  53. ZOFRAN [Concomitant]
     Active Substance: ONDANSETRON HYDROCHLORIDE
     Indication: MALIGNANT MELANOMA
     Dosage: 24 MG, DAILY (8 MG, TID)
     Route: 048
     Dates: start: 20180312

REACTIONS (6)
  - Ageusia [Not Recovered/Not Resolved]
  - Abdominal pain [Recovered/Resolved]
  - Malignant neoplasm progression [Fatal]
  - Constipation [Recovered/Resolved]
  - Metastatic malignant melanoma [Fatal]
  - Intracranial pressure increased [Recovered/Resolved]

NARRATIVE: CASE EVENT DATE: 20170829
